FAERS Safety Report 24736600 (Version 1)
Quarter: 2024Q4

REPORT INFORMATION
  Report Type: Spontaneous
  Country: US (occurrence: US)
  Receive Date: 20241216
  Receipt Date: 20241216
  Transmission Date: 20250114
  Serious: Yes (Life-Threatening, Hospitalization, Other)
  Sender: PURACAP PHARMACEUTICAL LLC
  Company Number: US-PURACAP-US-2024EPCLIT01535

PATIENT
  Age: 47 Year
  Sex: Male

DRUGS (3)
  1. AMLODIPINE [Suspect]
     Active Substance: AMLODIPINE BESYLATE
     Indication: Product used for unknown indication
     Route: 065
  2. HYDROCHLOROTHIAZIDE\TRIAMTERENE [Suspect]
     Active Substance: HYDROCHLOROTHIAZIDE\TRIAMTERENE
     Indication: Product used for unknown indication
     Route: 065
  3. AMITRIPTYLINE [Suspect]
     Active Substance: AMITRIPTYLINE
     Indication: Product used for unknown indication
     Route: 065

REACTIONS (10)
  - Distributive shock [Unknown]
  - Respiratory failure [Unknown]
  - Acute kidney injury [Unknown]
  - Hepatic function abnormal [Unknown]
  - Shock [Unknown]
  - Electrocardiogram ST segment depression [Unknown]
  - Echocardiogram abnormal [Unknown]
  - Ejection fraction abnormal [Unknown]
  - Toxicity to various agents [Unknown]
  - Intentional overdose [Unknown]
